FAERS Safety Report 6571050-4 (Version None)
Quarter: 2010Q1

REPORT INFORMATION
  Report Type: 
  Country: None (occurrence: None)
  Receive Date: 20100202
  Receipt Date: 20100202
  Transmission Date: 20100710
  Serious: No
  Sender: FDA-Public Use
  Company Number: None

PATIENT
  Sex: Male
  Weight: 69.2 kg

DRUGS (6)
  1. PEG-L ASPARAGINASE (PEGASPARGASE, ONCOSPAR) [Suspect]
     Dosage: 4625 IU
     Dates: end: 20090727
  2. PREDNISONE [Suspect]
     Dosage: 1815 MG
     Dates: end: 20090807
  3. VINCRISTINE SULFATE [Suspect]
     Dosage: 6 MG
     Dates: end: 20090807
  4. CYTARABINE [Suspect]
     Dosage: 70 MG
     Dates: end: 20090723
  5. DAUNORUBICIN HCL [Suspect]
     Dosage: 138 MG
     Dates: end: 20090807
  6. METHOTREXATE [Suspect]
     Dosage: 15 MG
     Dates: end: 20090727

REACTIONS (1)
  - BLOOD BILIRUBIN INCREASED [None]
